FAERS Safety Report 5045268-6 (Version None)
Quarter: 2006Q3

REPORT INFORMATION
  Report Type: 
  Country: None (occurrence: None)
  Receive Date: 20060705
  Receipt Date: 20060614
  Transmission Date: 20061208
  Serious: Yes (Hospitalization, Other)
  Sender: FDA-Public Use
  Company Number: US200604001968

PATIENT
  Age: 63 Year
  Sex: Female
  Weight: 95.7 kg

DRUGS (1)
  1. ZYPREXA [Suspect]
     Indication: DEPRESSION
     Dosage: ORAL
     Route: 048
     Dates: start: 19970101, end: 20050101

REACTIONS (7)
  - DECREASED ACTIVITY [None]
  - GAIT DISTURBANCE [None]
  - KNEE ARTHROPLASTY [None]
  - PAIN [None]
  - SURGERY [None]
  - WEIGHT INCREASED [None]
  - WEIGHT LOSS POOR [None]
